FAERS Safety Report 21530905 (Version 1)
Quarter: 2022Q4

REPORT INFORMATION
  Report Type: Spontaneous
  Country: CN (occurrence: None)
  Receive Date: 20221031
  Receipt Date: 20221031
  Transmission Date: 20230113
  Serious: Yes (Other)
  Sender: FDA-Public Use
  Company Number: CN-Eisai Medical Research-EC-2022-126559

PATIENT
  Age: 44 Year
  Sex: Male
  Weight: 54 kg

DRUGS (2)
  1. LENVIMA [Suspect]
     Active Substance: LENVATINIB
     Indication: Hepatic cancer
     Route: 048
     Dates: start: 20221011, end: 20221016
  2. CAMRELIZUMAB [Suspect]
     Active Substance: CAMRELIZUMAB
     Indication: Hepatic cancer
     Dosage: FREQUENCY UNKNOWN
     Route: 041
     Dates: start: 20221011, end: 20221011

REACTIONS (4)
  - Abdominal pain [Recovered/Resolved]
  - Diarrhoea [Recovered/Resolved]
  - Nausea [Recovered/Resolved]
  - Dyspepsia [Recovering/Resolving]

NARRATIVE: CASE EVENT DATE: 20221014
